FAERS Safety Report 13022495 (Version 4)
Quarter: 2017Q3

REPORT INFORMATION
  Report Type: Spontaneous
  Country: US (occurrence: US)
  Receive Date: 20161213
  Receipt Date: 20170823
  Transmission Date: 20171127
  Serious: Yes (Hospitalization)
  Sender: FDA-Public Use
  Company Number: US-PFIZER INC-2016570850

PATIENT
  Age: 66 Year
  Sex: Male
  Weight: 109.7 kg

DRUGS (34)
  1. COUMADIN [Suspect]
     Active Substance: WARFARIN SODIUM
     Dosage: 3 MG, DAILY, (EXCEPT ON TUESDAY HE TAKES 4 MG)
  2. PERCOCET [Concomitant]
     Active Substance: ACETAMINOPHEN\OXYCODONE HYDROCHLORIDE
     Indication: PAIN
     Dosage: 1 DF, AS NEEDED, [OXYCODONE HYDROCHLORIDE 5 MG]/[PARACETAMOL 325 MG], (MAX DAILY AMOUNT: 6 TABLET)
     Route: 048
  3. BACTROBAN [Concomitant]
     Active Substance: MUPIROCIN\MUPIROCIN CALCIUM
     Dosage: 22 G, 3X/DAY
     Route: 061
  4. DIPHENOXYLATE/ATROPINE [Concomitant]
     Active Substance: ATROPINE\DIPHENOXYLATE
     Indication: DIARRHOEA
     Dosage: 1 DF, AS NEEDED, [DIPHENOXYLATE 2.5 MG]/ [ATROPINE 0.025 MG], (FOUR TIMES DAILY)
     Route: 048
  5. ALBUTEROL HFA [Concomitant]
     Active Substance: ALBUTEROL SULFATE
     Indication: DYSPNOEA
     Dosage: UNK, AS NEEDED, (TAKE 2 PUFFS BY INHALATION EVERY 6 HOURS AS NEEDED)
     Route: 055
  6. METOPROLOL. [Concomitant]
     Active Substance: METOPROLOL
     Indication: BLOOD PRESSURE ABNORMAL
     Dosage: 250 MG, DAILY (ONE AND HALF TABLET 100MG TABLET IN MORNING AND 100MG AT NIGHT)
     Dates: start: 2005
  7. ROCALTROL [Concomitant]
     Active Substance: CALCITRIOL
     Dosage: 0.5 UG, ALTERNATE DAY, (EVERY MONDAY, WEDNESDAY, AND FRIDAY)
     Route: 048
  8. LEVOTHYROXINE. [Concomitant]
     Active Substance: LEVOTHYROXINE
     Dosage: 125 UG, 1X/DAY, (TAKE WITH 100 MCG PILL FOR TOTAL DOSE OF 125 MG)
  9. ZYLOPRIM [Concomitant]
     Active Substance: ALLOPURINOL
     Dosage: 100 MG, DAILY
     Route: 048
  10. OSCAL D [Concomitant]
     Active Substance: CALCIUM CARBONATE\CHOLECALCIFEROL
     Dosage: 1 DF, 2X/DAY, (WITH MEALS)
     Route: 048
  11. ZOFRAN [Concomitant]
     Active Substance: ONDANSETRON HYDROCHLORIDE
     Indication: NAUSEA
     Dosage: 8 MG, AS NEEDED, (EVERY 8 HOURS)
     Route: 048
  12. COUMADIN [Suspect]
     Active Substance: WARFARIN SODIUM
     Indication: ATRIAL FIBRILLATION
     Dosage: 2 MG, 1X/DAY
     Dates: start: 2002
  13. LIPITOR [Concomitant]
     Active Substance: ATORVASTATIN CALCIUM
     Indication: HYPERCHOLESTEROLAEMIA
     Dosage: 20 MG, DAILY
     Route: 048
     Dates: start: 2005
  14. LEVOTHYROXINE. [Concomitant]
     Active Substance: LEVOTHYROXINE
     Dosage: 100 UNK, UNK
     Route: 048
  15. ECOTRIN [Concomitant]
     Active Substance: ASPIRIN
     Dosage: 81 MG, DAILY
     Route: 048
  16. NORCO [Concomitant]
     Active Substance: ACETAMINOPHEN\HYDROCODONE BITARTRATE
     Indication: PAIN
     Dosage: 1 DF, AS NEEDED, [HYDROCODONE BITARTRATE 10 MG]/[PARACETAMOL 325 MG], (EVERY 4 HOURS)
     Route: 048
  17. ZOFRAN [Concomitant]
     Active Substance: ONDANSETRON HYDROCHLORIDE
     Indication: VOMITING
  18. LASIX [Concomitant]
     Active Substance: FUROSEMIDE
     Dosage: 40 MG, AS NEEDED, (1 TIME DAILY)
     Route: 048
  19. COQ10 [Concomitant]
     Active Substance: UBIDECARENONE
     Dosage: 100 MG, DAILY
     Route: 048
  20. LEVOTHYROXINE. [Concomitant]
     Active Substance: LEVOTHYROXINE
     Dosage: 125 UG, 1X/DAY, (TAKE WITH 100 MCG PILL FOR TOTAL DOSE OF 125 MG)
     Route: 048
  21. KLOR-CON [Concomitant]
     Active Substance: POTASSIUM CHLORIDE
     Dosage: 10 MEQ, DAILY
     Route: 048
  22. TOPROL XL [Concomitant]
     Active Substance: METOPROLOL SUCCINATE
     Dosage: 250 MG, DAILY, (TAKE 1 + 1/2 TABLET IN THE MORNING AND 1 TABLET EVERY EVENING)
  23. PRILOSEC [Concomitant]
     Active Substance: OMEPRAZOLE MAGNESIUM
     Dosage: 20 MG, DAILY
     Route: 048
  24. NITROSTAT [Concomitant]
     Active Substance: NITROGLYCERIN
     Indication: CHEST PAIN
     Dosage: 0.4 MG, AS NEEDED, (MAY USE UP TO 3 DOSES AS NEEDED FOR EACH EPISODE OF CHEST PAIN)
     Route: 060
  25. NEURONTIN [Concomitant]
     Active Substance: GABAPENTIN
     Dosage: 300 MG, 2X/DAY
     Route: 048
  26. NORVASC [Concomitant]
     Active Substance: AMLODIPINE BESYLATE
     Dosage: 5 MG, DAILY
  27. COMPAZINE [Concomitant]
     Active Substance: PROCHLORPERAZINE MALEATE
     Indication: NAUSEA
     Dosage: 10 MG, AS NEEDED
     Route: 048
  28. COMPAZINE [Concomitant]
     Active Substance: PROCHLORPERAZINE MALEATE
     Indication: VOMITING
  29. SUTENT [Suspect]
     Active Substance: SUNITINIB MALATE
     Indication: RENAL CELL CARCINOMA
     Dosage: 50 MG, 1X/DAY
     Route: 048
  30. SUTENT [Suspect]
     Active Substance: SUNITINIB MALATE
     Dosage: 50 MG, 1X/DAY
     Dates: start: 20150405
  31. SUTENT [Suspect]
     Active Substance: SUNITINIB MALATE
     Dosage: 50 MG, CYCLIC, (DAILY 4 WEEKS ON 2 WEEKS OFF)
     Route: 048
  32. COUMADIN [Suspect]
     Active Substance: WARFARIN SODIUM
     Dosage: 4 MG, DAILY, (EXCEPT ON TUESDAY HE TAKES 4 MG)
  33. APRESOLINE HYDROCHLORIDE [Concomitant]
     Active Substance: HYDRALAZINE HYDROCHLORIDE
     Dosage: 50 MG, 3X/DAY, (EVERY 8 HOURS)
     Route: 048
  34. FOLBEE [Concomitant]
     Active Substance: CYANOCOBALAMIN\FOLIC ACID\PYRIDOXINE HYDROCHLORIDE
     Dosage: 1 DF, 2X/DAY, [CYANOCOBALAMIN 1 MG, FOLIC ACID 2.5 MG, PYRIDOXINE HYDROCHLORIDE 25 MG]
     Route: 048

REACTIONS (1)
  - Blood disorder [Recovered/Resolved]

NARRATIVE: CASE EVENT DATE: 20161114
